FAERS Safety Report 9611200 (Version 2)
Quarter: 2014Q1

REPORT INFORMATION
  Report Type: Report from Study
  Country: US (occurrence: US)
  Receive Date: 20131009
  Receipt Date: 20140109
  Transmission Date: 20141002
  Serious: Yes (Hospitalization, Other)
  Sender: FDA-Public Use
  Company Number: US-ABBVIE-13P-163-1153514-00

PATIENT
  Age: 51 Year
  Sex: Female

DRUGS (13)
  1. HUMIRA [Suspect]
     Indication: RHEUMATOID ARTHRITIS
     Dates: start: 20130102, end: 20130102
  2. HUMIRA [Suspect]
     Dates: start: 20130407, end: 20130407
  3. HUMIRA [Suspect]
     Dosage: SELF ADMINISTERED
  4. SULFASALAZINE [Suspect]
     Indication: RHEUMATOID ARTHRITIS
     Dates: start: 2012
  5. FOLIC ACID [Concomitant]
     Indication: RHEUMATOID ARTHRITIS
  6. PREDNISONE [Concomitant]
     Indication: RHEUMATOID ARTHRITIS
  7. UNKNOWN MEDICATION [Concomitant]
     Indication: HYPERTENSION
  8. DIOVAN [Concomitant]
     Indication: HYPERTENSION
  9. METHOTREXATE [Concomitant]
     Indication: RHEUMATOID ARTHRITIS
     Route: 048
     Dates: start: 2010
  10. MOBIC [Concomitant]
     Indication: RHEUMATOID ARTHRITIS
  11. ADVAIR [Concomitant]
     Indication: PRODUCT USED FOR UNKNOWN INDICATION
  12. ALUPENT [Concomitant]
     Indication: PRODUCT USED FOR UNKNOWN INDICATION
  13. IRON [Concomitant]
     Indication: PRODUCT USED FOR UNKNOWN INDICATION

REACTIONS (17)
  - Renal failure [Unknown]
  - Stevens-Johnson syndrome [Unknown]
  - Sepsis [Unknown]
  - Blood count abnormal [Unknown]
  - Infection [Unknown]
  - Hospitalisation [Unknown]
  - Rash erythematous [Recovering/Resolving]
  - Rash pruritic [Recovering/Resolving]
  - Rash erythematous [Recovering/Resolving]
  - Pruritus [Recovering/Resolving]
  - Skin wound [Unknown]
  - Skin discolouration [Unknown]
  - Mobility decreased [Unknown]
  - Abasia [Recovering/Resolving]
  - Rash [Unknown]
  - Eczema [Unknown]
  - Rheumatoid arthritis [Unknown]
